FAERS Safety Report 10710399 (Version 1)
Quarter: 2015Q1

REPORT INFORMATION
  Report Type: Spontaneous
  Country: US (occurrence: US)
  Receive Date: 20150114
  Receipt Date: 20150114
  Transmission Date: 20150721
  Serious: Yes (Death)
  Sender: FDA-Public Use
  Company Number: US-BAYER-2015-003815

PATIENT
  Age: 44 Year
  Sex: Female

DRUGS (7)
  1. DIPHENHYDRAMINE HYDROCHLORIDE. [Suspect]
     Active Substance: DIPHENHYDRAMINE HYDROCHLORIDE
  2. AMITRIPTYLINE [Suspect]
     Active Substance: AMITRIPTYLINE
  3. TRAMADOL [Suspect]
     Active Substance: TRAMADOL
  4. LORAZEPAM. [Suspect]
     Active Substance: LORAZEPAM
  5. BUTALBITAL [Suspect]
     Active Substance: BUTALBITAL
  6. ETHANOL [Suspect]
     Active Substance: ALCOHOL
  7. AMPHETAMINE SALTS [Suspect]
     Active Substance: AMPHETAMINE ASPARTATE\AMPHETAMINE SULFATE\DEXTROAMPHETAMINE SACCHARATE\DEXTROAMPHETAMINE SULFATE

REACTIONS (1)
  - Toxicity to various agents [Fatal]
